FAERS Safety Report 5334200-3 (Version None)
Quarter: 2007Q2

REPORT INFORMATION
  Report Type: 
  Country: None (occurrence: None)
  Receive Date: 20070523
  Receipt Date: 20070523
  Transmission Date: 20071010
  Serious: Yes (Hospitalization)
  Sender: FDA-Public Use
  Company Number: None

PATIENT
  Age: 60 Year
  Sex: Male
  Weight: 110.3 kg

DRUGS (2)
  1. LISINOPRIL [Suspect]
     Dosage: 2.5MG DAILY PO
     Route: 048
  2. ISOSORBIDE MONONITRATE [Suspect]
     Dosage: 30MG DAILY PO
     Route: 048

REACTIONS (2)
  - DYSPNOEA EXERTIONAL [None]
  - HYPOTENSION [None]
